FAERS Safety Report 9206360 (Version 1)
Quarter: 2013Q2

REPORT INFORMATION
  Report Type: Spontaneous
  Country: FR (occurrence: None)
  Receive Date: 20130401
  Receipt Date: 20130401
  Transmission Date: 20140414
  Serious: Yes (Other)
  Sender: FDA-Public Use
  Company Number: 2013095841

PATIENT
  Age: 30 Year
  Sex: Male

DRUGS (2)
  1. FRAGMINE (DALTEPARIN SODIUM) SOLUTION FOR INJECTION [Suspect]
     Dates: start: 20130305, end: 20130322
  2. ADALATE (NIFEDIPINE) [Concomitant]

REACTIONS (2)
  - Platelet count increased [None]
  - Foot fracture [None]
